FAERS Safety Report 26156897 (Version 1)
Quarter: 2025Q4

REPORT INFORMATION
  Report Type: Report from Study
  Country: US (occurrence: US)
  Receive Date: 20251215
  Receipt Date: 20251215
  Transmission Date: 20260118
  Serious: Yes (Hospitalization)
  Sender: ETON PHARMACEUTICALS, INC
  Company Number: US-ETON PHARMACEUTICALS, INC-2025ETO000630

PATIENT

DRUGS (2)
  1. GALZIN [Suspect]
     Active Substance: ZINC ACETATE
     Indication: Zinc deficiency
     Dosage: 25 MILLIGRAM, ONCE
     Route: 048
     Dates: start: 20251029
  2. GALZIN [Suspect]
     Active Substance: ZINC ACETATE
     Indication: Short-bowel syndrome

REACTIONS (2)
  - Hospitalisation [Unknown]
  - Off label use [Unknown]

NARRATIVE: CASE EVENT DATE: 20250101
